FAERS Safety Report 10100556 (Version 5)
Quarter: 2014Q3

REPORT INFORMATION
  Report Type: Report from Study
  Country: US (occurrence: US)
  Receive Date: 20140423
  Receipt Date: 20140825
  Transmission Date: 20150326
  Serious: Yes (Death, Hospitalization)
  Sender: FDA-Public Use
  Company Number: US-BAYER-2013-149144

PATIENT
  Age: 64 Year
  Sex: Female

DRUGS (10)
  1. ADEMPAS [Suspect]
     Active Substance: RIOCIGUAT
     Indication: PULMONARY ARTERIAL HYPERTENSION
     Dosage: 0.5 MG, BID
     Dates: start: 20131203
  2. ADEMPAS [Suspect]
     Active Substance: RIOCIGUAT
     Indication: PULMONARY ARTERIAL HYPERTENSION
     Dosage: 0.5 MG, TID
     Route: 048
     Dates: start: 20131219, end: 20140213
  3. BUTALBITAL, ACETAMINOPHEN, CAFFEINE [Concomitant]
     Active Substance: ACETAMINOPHEN\BUTALBITAL\CAFFEINE
     Dosage: 5/500 ONE EVERY 4-6 HRS PRN
  4. EPOPROSTENOL [Concomitant]
     Active Substance: EPOPROSTENOL
  5. ADEMPAS [Suspect]
     Active Substance: RIOCIGUAT
     Indication: PULMONARY ARTERIAL HYPERTENSION
     Dosage: 1 MG, TID
     Route: 048
     Dates: start: 20140213
  6. ADEMPAS [Suspect]
     Active Substance: RIOCIGUAT
     Indication: PULMONARY ARTERIAL HYPERTENSION
     Dosage: 0.5 MG, TID
     Route: 048
  7. EPHEDRINE [Concomitant]
     Active Substance: EPHEDRINE
     Dosage: 2 CAPS AT ONSET, 1 EVERY 30 MIN, MAX 5 IN 12HR, 8 IN 24HR
  8. ADEMPAS [Suspect]
     Active Substance: RIOCIGUAT
     Indication: PULMONARY ARTERIAL HYPERTENSION
     Dosage: 0.5 MG, TID
     Route: 048
     Dates: start: 20131129
  9. HYDROCODONE BIT/APAP [Concomitant]
     Active Substance: ACETAMINOPHEN\HYDROCODONE BITARTRATE
     Dosage: 1 TAB EVERY 6HR
  10. ADEMPAS [Suspect]
     Active Substance: RIOCIGUAT
     Indication: PULMONARY ARTERIAL HYPERTENSION
     Dosage: 1 MG, TID
     Route: 048
     Dates: start: 20140313

REACTIONS (22)
  - Gallbladder operation [None]
  - Hyperhidrosis [None]
  - Cardiac arrest [Fatal]
  - Oedema [None]
  - Diarrhoea [None]
  - Influenza [None]
  - Migraine [None]
  - Cough [None]
  - Abdominal pain upper [None]
  - Abdominal pain upper [None]
  - Bone pain [Recovering/Resolving]
  - Heart rate increased [Recovered/Resolved]
  - Pain in extremity [None]
  - Epistaxis [None]
  - Nausea [Not Recovered/Not Resolved]
  - Hot flush [None]
  - Palpitations [None]
  - Headache [Recovering/Resolving]
  - Weight increased [None]
  - Migraine [None]
  - Abdominal discomfort [None]
  - Vomiting [Not Recovered/Not Resolved]

NARRATIVE: CASE EVENT DATE: 20140203
